FAERS Safety Report 5101594-3 (Version None)
Quarter: 2006Q3

REPORT INFORMATION
  Report Type: 
  Country: None (occurrence: None)
  Receive Date: 20060911
  Receipt Date: 20060531
  Transmission Date: 20061208
  Serious: Yes (Other)
  Sender: FDA-Public Use
  Company Number: AU-BRISTOL-MYERS SQUIBB COMPANY-13395009

PATIENT
  Age: 73 Year
  Sex: Male
  Weight: 80 kg

DRUGS (11)
  1. IRBESARTAN AND HYDROCHLOROTHIAZIDE [Suspect]
     Indication: HYPERTENSION
     Route: 048
     Dates: start: 20051122, end: 20060306
  2. AVAPRO [Suspect]
     Indication: HYPERTENSION
     Route: 048
     Dates: start: 20060306, end: 20060517
  3. SIMVASTATIN TAB [Concomitant]
     Indication: MYOCARDIAL INFARCTION
     Route: 048
  4. NEXIUM [Concomitant]
     Indication: GASTROOESOPHAGEAL REFLUX DISEASE
     Route: 048
  5. ATENOLOL [Concomitant]
  6. COVERSYL [Concomitant]
  7. FUROSEMIDE [Concomitant]
  8. LACRI-LUBE [Concomitant]
  9. MAGMIN [Concomitant]
  10. POLY-TEARS [Concomitant]
  11. SOLPRIN [Concomitant]
     Dosage: 300 MG, DOSE: 1/2 2ND DAILY

REACTIONS (1)
  - NEUROPATHY PERIPHERAL [None]
